FAERS Safety Report 7559845-1 (Version None)
Quarter: 2011Q2

REPORT INFORMATION
  Report Type: 
  Country: None (occurrence: None)
  Receive Date: 20110621
  Receipt Date: 20110616
  Transmission Date: 20111010
  Serious: Yes (Life-Threatening, Hospitalization)
  Sender: FDA-Public Use
  Company Number: PHHY2011GB52895

PATIENT
  Age: 8 Year
  Sex: Female

DRUGS (8)
  1. CYCLOPHOSPHAMIDE [Concomitant]
     Dosage: 200 MG/KG, UNK
  2. CYCLOSPORINE [Concomitant]
     Indication: PROPHYLAXIS AGAINST GRAFT VERSUS HOST DISEASE
  3. TRANSFUSIONS [Concomitant]
  4. DEFERASIROX [Concomitant]
     Dates: start: 20091001
  5. THIOTEPA [Concomitant]
     Dosage: 10 MG/KG, UNK
  6. METHOTREXATE [Suspect]
     Indication: PROPHYLAXIS AGAINST GRAFT VERSUS HOST DISEASE
  7. BUSULFAN [Concomitant]
     Dosage: 14 MG/KG, UNK
  8. CAMPATH [Concomitant]
     Dosage: 0.3 MG/KG, UNK

REACTIONS (5)
  - VENOOCCLUSIVE DISEASE [None]
  - CYTOMEGALOVIRUS INFECTION [None]
  - BACTERIAL SEPSIS [None]
  - PULMONARY HAEMORRHAGE [None]
  - MUCOSAL INFLAMMATION [None]
